FAERS Safety Report 9459966 (Version 1)
Quarter: 2013Q3

REPORT INFORMATION
  Report Type: Spontaneous
  Country: US (occurrence: None)
  Receive Date: 20130813
  Receipt Date: 20130813
  Transmission Date: 20140515
  Serious: Yes (Life-Threatening, Hospitalization, Disabling, Other)
  Sender: FDA-Public Use
  Company Number: None

PATIENT
  Age: 71 Year
  Sex: Female
  Weight: 45.36 kg

DRUGS (1)
  1. AMBIEN [Suspect]
     Indication: INSOMNIA

REACTIONS (7)
  - Psychotic behaviour [None]
  - Osteoporosis [None]
  - Hallucination, visual [None]
  - Weight decreased [None]
  - Asthenia [None]
  - Staring [None]
  - Tremor [None]
